FAERS Safety Report 6956913-X (Version None)
Quarter: 2010Q3

REPORT INFORMATION
  Report Type: 
  Country: None (occurrence: None)
  Receive Date: 20100826
  Receipt Date: 20100811
  Transmission Date: 20110219
  Serious: Yes (Hospitalization)
  Sender: FDA-Public Use
  Company Number: AMAG201000291

PATIENT
  Age: 70 Year
  Sex: Female
  Weight: 52.2 kg

DRUGS (15)
  1. FERAHEME [Suspect]
     Indication: ANAEMIA
     Dosage: 360 MG, SINGLE, INTRAVENOUS
     Route: 042
     Dates: start: 20100707, end: 20100707
  2. BENADRYL [Concomitant]
  3. SOLU-CORTEF [Concomitant]
  4. ASACOLITIN (MESALAZINE) [Concomitant]
  5. IMURAN [Concomitant]
  6. LISINOPRIL (LISINOPRIL DIHYDRATE) [Concomitant]
  7. AMLODIPINE [Concomitant]
  8. OMEPRAZOLE [Concomitant]
  9. ADVAIR DISKUS 100/50 [Concomitant]
  10. SPIRIVA [Concomitant]
  11. ALBUTEROL (SALBUTAMOL SULFATE) [Concomitant]
  12. CYANOCOBALAMIN [Concomitant]
  13. FOSAMAX [Concomitant]
  14. LEXAPRO [Concomitant]
  15. ZOLPIDEM TARTRATE [Concomitant]

REACTIONS (15)
  - ABDOMINAL PAIN [None]
  - ANAPHYLACTIC REACTION [None]
  - ANXIETY [None]
  - BACK PAIN [None]
  - BLOOD PRESSURE DECREASED [None]
  - BLOOD PRESSURE INCREASED [None]
  - BRONCHOSPASM [None]
  - CHEST DISCOMFORT [None]
  - DYSPNOEA [None]
  - HAEMATEMESIS [None]
  - HEART RATE INCREASED [None]
  - NO THERAPEUTIC RESPONSE [None]
  - OXYGEN SATURATION DECREASED [None]
  - RESPIRATORY RATE INCREASED [None]
  - RESTLESSNESS [None]
